FAERS Safety Report 10523533 (Version 28)
Quarter: 2017Q2

REPORT INFORMATION
  Report Type: Report from Study
  Country: CA (occurrence: CA)
  Receive Date: 20141017
  Receipt Date: 20170612
  Transmission Date: 20170829
  Serious: Yes (Other)
  Sender: FDA-Public Use
  Company Number: CA-ROCHE-1354332

PATIENT
  Age: 57 Year
  Sex: Female
  Weight: 104 kg

DRUGS (2)
  1. ACTEMRA [Suspect]
     Active Substance: TOCILIZUMAB
     Route: 042
     Dates: start: 20150721
  2. ACTEMRA [Suspect]
     Active Substance: TOCILIZUMAB
     Indication: RHEUMATOID ARTHRITIS
     Route: 042
     Dates: start: 20140128

REACTIONS (32)
  - Pyrexia [Not Recovered/Not Resolved]
  - Infusion related reaction [Unknown]
  - Morton^s neuralgia [Unknown]
  - Vascular access complication [Unknown]
  - Gout [Unknown]
  - White blood cell count decreased [Unknown]
  - Arthralgia [Recovering/Resolving]
  - Swelling [Not Recovered/Not Resolved]
  - Rheumatoid nodule [Unknown]
  - Erythema [Unknown]
  - Vomiting [Not Recovered/Not Resolved]
  - Blood pressure diastolic decreased [Unknown]
  - Blood pressure decreased [Unknown]
  - Cough [Not Recovered/Not Resolved]
  - Body temperature decreased [Unknown]
  - Rhinorrhoea [Recovered/Resolved]
  - Pneumonia [Recovered/Resolved]
  - Fatigue [Unknown]
  - Oropharyngeal pain [Not Recovered/Not Resolved]
  - Infusion site extravasation [Unknown]
  - Nasal congestion [Unknown]
  - Phlebitis superficial [Unknown]
  - Viral upper respiratory tract infection [Not Recovered/Not Resolved]
  - Feeling hot [Unknown]
  - Bronchitis [Recovered/Resolved]
  - Influenza [Not Recovered/Not Resolved]
  - Herpes zoster [Not Recovered/Not Resolved]
  - Headache [Not Recovered/Not Resolved]
  - Musculoskeletal disorder [Unknown]
  - Malaise [Not Recovered/Not Resolved]
  - Pyrexia [Not Recovered/Not Resolved]
  - Food poisoning [Not Recovered/Not Resolved]

NARRATIVE: CASE EVENT DATE: 201405
